FAERS Safety Report 23060714 (Version 1)
Quarter: 2023Q4

REPORT INFORMATION
  Report Type: Spontaneous
  Country: US (occurrence: US)
  Receive Date: 20231012
  Receipt Date: 20231012
  Transmission Date: 20240109
  Serious: Yes (Other)
  Sender: FDA-Public Use
  Company Number: US-TEVA-2023-US-2932802

PATIENT
  Age: 66 Year
  Sex: Female
  Weight: 81.65 kg

DRUGS (1)
  1. COPAXONE [Suspect]
     Active Substance: GLATIRAMER ACETATE
     Indication: Multiple sclerosis
     Route: 065

REACTIONS (3)
  - Blindness [Unknown]
  - Body height decreased [Unknown]
  - Wrong technique in product usage process [Unknown]
